FAERS Safety Report 6548280-0 (Version None)
Quarter: 2010Q1

REPORT INFORMATION
  Report Type: 
  Country: None (occurrence: None)
  Receive Date: 20100124
  Receipt Date: 20090403
  Transmission Date: 20100710
  Serious: No
  Sender: FDA-Public Use
  Company Number: US-ALLERGAN-0904608US

PATIENT
  Sex: Female

DRUGS (7)
  1. RESTASIS [Suspect]
     Indication: DRY EYE
     Dosage: UNK, UNK
     Route: 047
     Dates: start: 20090301, end: 20090403
  2. NEXIUM [Concomitant]
     Dosage: 40 MG, QD
  3. BONIVA [Concomitant]
     Dosage: 150 MG, QMONTH
  4. GABAPENTIN [Concomitant]
     Dosage: 600 MG, TID
  5. CELEBREX [Concomitant]
     Dosage: 200 MG, QD
  6. PROZAC [Concomitant]
     Dosage: 40 MG, QD
  7. NORVASC [Concomitant]
     Dosage: 5 MG, QD

REACTIONS (1)
  - EYE IRRITATION [None]
